FAERS Safety Report 5428706-6 (Version None)
Quarter: 2007Q3

REPORT INFORMATION
  Report Type: 
  Country: None (occurrence: None)
  Receive Date: 20070828
  Receipt Date: 20070820
  Transmission Date: 20080115
  Serious: Yes (Life-Threatening, Hospitalization, Other)
  Sender: FDA-Public Use
  Company Number: GB-SHR-GB-2006-006123

PATIENT
  Age: 64 Year
  Sex: Female

DRUGS (7)
  1. SOTALOL HYDROCHLORIDE [Suspect]
     Dosage: UNK, UNK
  2. DIGOXIN [Suspect]
     Dosage: 80 MG, 1X/DAY
  3. WARFARIN [Concomitant]
     Dosage: UNK, UNK
  4. CO-AMILOFRUSE [Concomitant]
     Indication: ATRIAL FIBRILLATION
  5. PERINDOPRIL ERBUMINE [Concomitant]
     Indication: ATRIAL FIBRILLATION
  6. SECURON [Suspect]
     Dosage: 80 MG, 3X/DAY
     Route: 048
  7. FRUMIL [Concomitant]
     Dosage: UNK, UNK

REACTIONS (22)
  - ABDOMINAL DISCOMFORT [None]
  - ABDOMINAL PAIN [None]
  - ABDOMINAL TENDERNESS [None]
  - ATRIAL FIBRILLATION [None]
  - BRADYCARDIA [None]
  - CARDIAC FAILURE [None]
  - CARDIOACTIVE DRUG LEVEL DECREASED [None]
  - CARDIOMEGALY [None]
  - COUGH [None]
  - DEPRESSED LEVEL OF CONSCIOUSNESS [None]
  - DRUG INTERACTION [None]
  - DRUG TOXICITY [None]
  - DYSPNOEA [None]
  - GASTROINTESTINAL SOUNDS ABNORMAL [None]
  - HEPATIC ENZYME INCREASED [None]
  - HYPOTENSION [None]
  - LIVEDO RETICULARIS [None]
  - LIVER FUNCTION TEST ABNORMAL [None]
  - METABOLIC ACIDOSIS [None]
  - PIGMENTATION DISORDER [None]
  - PULSE ABSENT [None]
  - RENAL FAILURE [None]
